FAERS Safety Report 9073257 (Version 1)
Quarter: 2013Q1

REPORT INFORMATION
  Report Type: Report from Study
  Country: US (occurrence: US)
  Receive Date: 20130129
  Receipt Date: 20130129
  Transmission Date: 20140127
  Serious: No
  Sender: FDA-Public Use
  Company Number: US-ABBOTT-12P-163-0922000-00

PATIENT
  Age: 51 Year
  Sex: Female
  Weight: 63.56 kg

DRUGS (2)
  1. HUMIRA 40 MG/0.8 ML PEN [Suspect]
     Indication: CROHN^S DISEASE
     Route: 058
     Dates: start: 20120327
  2. HUMIRA 40 MG/0.8 ML PEN [Suspect]
     Indication: RHEUMATOID ARTHRITIS

REACTIONS (5)
  - Dizziness [Unknown]
  - Oropharyngeal pain [Unknown]
  - Fatigue [Unknown]
  - Rhinorrhoea [Unknown]
  - Cough [Unknown]
